FAERS Safety Report 5050037-7 (Version None)
Quarter: 2006Q2

REPORT INFORMATION
  Report Type: 
  Country: None (occurrence: None)
  Receive Date: 20060601
  Receipt Date: 20060217
  Transmission Date: 20061013
  Serious: No
  Sender: FDA-Public Use
  Company Number: US200602003812

PATIENT
  Age: 35 Year
  Sex: Male

DRUGS (3)
  1. CYMBALTA [Suspect]
     Indication: DEPRESSION
     Dosage: 30 MG
     Dates: start: 20050101
  2. ZANTAC [Concomitant]
  3. VITAMINS-MINERALS THERAPEUTIC (VITAMINS-MINERALS THERAPEUTIC) [Concomitant]

REACTIONS (4)
  - ACNE [None]
  - INCREASED TENDENCY TO BRUISE [None]
  - IRRITABILITY [None]
  - MILIA [None]
